FAERS Safety Report 8536861-4 (Version None)
Quarter: 2012Q3

REPORT INFORMATION
  Report Type: 
  Country: None (occurrence: None)
  Receive Date: 20120725
  Receipt Date: 20120718
  Transmission Date: 20120928
  Serious: Yes (Other)
  Sender: FDA-Public Use
  Company Number: CA-ROCHE-1068878

PATIENT
  Sex: Male

DRUGS (19)
  1. GLICLAZIDE [Concomitant]
  2. METFORMIN HYDROCHLORIDE [Concomitant]
  3. VEMURAFENIB [Suspect]
     Indication: METASTATIC MALIGNANT MELANOMA
     Dosage: THERAPY WAS DISCONTINUED.
     Route: 048
     Dates: start: 20120504
  4. OMEPRAZOLE [Concomitant]
  5. EPA-DHA EXTRA STRENGTH [Concomitant]
  6. LAMOTRIGINE [Concomitant]
  7. ATENOLOL [Concomitant]
  8. CHLORTHALIDONE [Concomitant]
  9. EZETIMIBE [Concomitant]
  10. PROBIOTIC (ENZYMES, INC) [Concomitant]
  11. RAMIPRIL [Concomitant]
  12. PIOGLITAZONE [Concomitant]
  13. SITAGLIPTIN [Concomitant]
  14. TEMAZEPAM [Concomitant]
  15. VITAMIN D [Concomitant]
  16. MULTI-VITAMIN [Concomitant]
  17. ASPIRIN [Concomitant]
  18. ASCORBIC ACID [Concomitant]
  19. LOVAZA [Concomitant]

REACTIONS (8)
  - NAUSEA [None]
  - ARTHRALGIA [None]
  - AGEUSIA [None]
  - VOMITING [None]
  - NEOPLASM [None]
  - DISEASE PROGRESSION [None]
  - HEADACHE [None]
  - RASH [None]
